FAERS Safety Report 15526193 (Version 2)
Quarter: 2018Q4

REPORT INFORMATION
  Report Type: Report from Study
  Country: BR (occurrence: BR)
  Receive Date: 20181018
  Receipt Date: 20181025
  Transmission Date: 20190205
  Serious: No
  Sender: FDA-Public Use
  Company Number: BR-EMD SERONO-E2B_90038687

PATIENT
  Age: 23 Year
  Sex: Female

DRUGS (2)
  1. VENLAFAXINE [Concomitant]
     Active Substance: VENLAFAXINE HYDROCHLORIDE
     Indication: PRODUCT USED FOR UNKNOWN INDICATION
  2. REBIF [Suspect]
     Active Substance: INTERFERON BETA-1A
     Indication: MULTIPLE SCLEROSIS
     Route: 058
     Dates: start: 20180412

REACTIONS (3)
  - Injection site erythema [Recovered/Resolved]
  - Injection site pain [Unknown]
  - Pain [Recovered/Resolved]

NARRATIVE: CASE EVENT DATE: 2018
